FAERS Safety Report 9554341 (Version 4)
Quarter: 2014Q2

REPORT INFORMATION
  Report Type: Spontaneous
  Country: US (occurrence: US)
  Receive Date: 20130925
  Receipt Date: 20140507
  Transmission Date: 20141212
  Serious: Yes (Other)
  Sender: FDA-Public Use
  Company Number: US-PFIZER INC-2013275342

PATIENT
  Age: 73 Year
  Sex: Female
  Weight: 99.77 kg

DRUGS (5)
  1. LYRICA [Suspect]
     Indication: NEURALGIA
     Dosage: 150 MG, 2X/DAY
     Route: 048
  2. LYRICA [Suspect]
     Dosage: 150 MG, 1X/DAY
     Route: 048
     Dates: end: 201402
  3. ROPINIROLE [Concomitant]
     Indication: RESTLESS LEGS SYNDROME
     Dosage: 3 MG, 1X/DAY (AT NIGHT)
  4. ALLOPURINOL [Concomitant]
     Indication: GOUT
     Dosage: 25 MG, 2X/DAY
  5. ATENOLOL [Concomitant]
     Indication: HYPERTENSION
     Dosage: 25 MG, 1X/DAY

REACTIONS (5)
  - Gout [Unknown]
  - Disease recurrence [Unknown]
  - Foot deformity [Unknown]
  - Pain [Unknown]
  - Insomnia [Not Recovered/Not Resolved]
